FAERS Safety Report 26149624 (Version 1)
Quarter: 2025Q4

REPORT INFORMATION
  Report Type: Spontaneous
  Country: US (occurrence: US)
  Receive Date: 20251212
  Receipt Date: 20251212
  Transmission Date: 20260117
  Serious: Yes (Disabling, Other)
  Sender: REGENERON
  Company Number: US-REGENERON PHARMACEUTICALS, INC.-2025-194227

PATIENT
  Sex: Female

DRUGS (1)
  1. EYLEA [Suspect]
     Active Substance: AFLIBERCEPT
     Indication: Product used for unknown indication
     Dosage: UNK, INTO BOTH EYES; FORMULATION: UNKNOWN
     Route: 031

REACTIONS (7)
  - Blindness unilateral [Unknown]
  - Retinal injury [Unknown]
  - Photopsia [Unknown]
  - Eye haemorrhage [Unknown]
  - Vision blurred [Not Recovered/Not Resolved]
  - Ocular hyperaemia [Unknown]
  - Injection site pain [Unknown]
